FAERS Safety Report 5942790-2 (Version None)
Quarter: 2008Q4

REPORT INFORMATION
  Report Type: 
  Country: None (occurrence: None)
  Receive Date: 20081103
  Receipt Date: 20081020
  Transmission Date: 20090506
  Serious: Yes (Hospitalization)
  Sender: FDA-Public Use
  Company Number: FABR-1000455

PATIENT
  Age: 40 Year
  Sex: Female
  Weight: 65 kg

DRUGS (12)
  1. FABRAZYME [Suspect]
     Indication: FABRY'S DISEASE
     Dosage: 65 MG, Q2W, INTRAVENOUS
     Route: 042
     Dates: start: 20070323
  2. FISH OIL (FISH OIL) [Suspect]
     Indication: DRUG USE FOR UNKNOWN INDICATION
     Dosage: 1200 MG
  3. PANTOPRAZOLE SODIUM [Concomitant]
  4. VYTORIN (EZEZTIMIBE, SIMVASTATIN) [Concomitant]
  5. CEFUROXIME [Concomitant]
  6. RAPAMUNE [Concomitant]
  7. COZAAR [Concomitant]
  8. PREDNISOLONE ACETATE [Concomitant]
  9. OXYBUTYNIN CHLORIDE [Concomitant]
  10. PROGRAF [Concomitant]
  11. CALCIUM (ASCORBIC ACID) [Concomitant]
  12. VITAMIN D [Concomitant]

REACTIONS (1)
  - PYELONEPHRITIS [None]
